FAERS Safety Report 9223411 (Version 3)
Quarter: 2013Q2

REPORT INFORMATION
  Report Type: Spontaneous
  Country: US (occurrence: US)
  Receive Date: 20130410
  Receipt Date: 20130424
  Transmission Date: 20140414
  Serious: Yes (Life-Threatening, Other)
  Sender: FDA-Public Use
  Company Number: US-GILEAD-2013-0073137

PATIENT
  Age: 74 Year
  Sex: Male

DRUGS (2)
  1. LETAIRIS [Suspect]
     Indication: PULMONARY ARTERIAL HYPERTENSION
     Dosage: 5 MG, QD
     Route: 048
     Dates: start: 20130329
  2. ADCIRCA [Suspect]
     Dosage: UNK
     Dates: start: 20130402

REACTIONS (6)
  - Anaphylactic reaction [Unknown]
  - Diplopia [Unknown]
  - Visual impairment [Unknown]
  - Dyspnoea [Not Recovered/Not Resolved]
  - Swelling [Unknown]
  - Hypersensitivity [Unknown]
